FAERS Safety Report 9208197 (Version 1)
Quarter: 2013Q2

REPORT INFORMATION
  Report Type: Spontaneous
  Country: SA (occurrence: SA)
  Receive Date: 20130403
  Receipt Date: 20130403
  Transmission Date: 20140414
  Serious: Yes (Other)
  Sender: FDA-Public Use
  Company Number: SA-BAXTER-2013BAX012664

PATIENT
  Sex: 0

DRUGS (5)
  1. ENDOXAN [Suspect]
     Indication: BENIGN NEOPLASM
     Route: 065
  2. BUSULFAN [Suspect]
     Indication: BENIGN NEOPLASM
     Route: 065
  3. ATG [Suspect]
     Indication: BENIGN NEOPLASM
     Route: 065
  4. CYCLOSPORINE [Concomitant]
     Indication: PROPHYLAXIS
     Route: 065
  5. METHOTREXATE [Concomitant]
     Indication: PROPHYLAXIS
     Route: 065

REACTIONS (2)
  - Cytomegalovirus infection [Recovered/Resolved]
  - Infection reactivation [None]
